FAERS Safety Report 6818354-5 (Version None)
Quarter: 2010Q3

REPORT INFORMATION
  Report Type: 
  Country: None (occurrence: None)
  Receive Date: 20100706
  Receipt Date: 20080213
  Transmission Date: 20110219
  Serious: No
  Sender: FDA-Public Use
  Company Number: US-PFIZER INC-2008014025

PATIENT
  Sex: Female
  Weight: 54.5 kg

DRUGS (3)
  1. ZITHROMAX [Suspect]
     Indication: RESPIRATORY TRACT INFECTION
     Route: 048
     Dates: start: 20080205
  2. GABAPENTIN [Concomitant]
  3. TEMAZEPAM [Concomitant]

REACTIONS (1)
  - HEARING IMPAIRED [None]
